FAERS Safety Report 6124086-1 (Version None)
Quarter: 2009Q1

REPORT INFORMATION
  Report Type: 
  Country: None (occurrence: None)
  Receive Date: 20090318
  Receipt Date: 20090318
  Transmission Date: 20090719
  Serious: Yes (Other)
  Sender: FDA-Public Use
  Company Number: None

PATIENT
  Age: 52 Year
  Sex: Female
  Weight: 81.6475 kg

DRUGS (2)
  1. LYRICA [Suspect]
     Indication: FIBROMYALGIA
     Dosage: 100MG  3X'S A DAY
     Dates: start: 20080601, end: 20090317
  2. LYRICA [Suspect]
     Dosage: 75MG  2X'S DAY

REACTIONS (10)
  - BONE PAIN [None]
  - DRUG WITHDRAWAL SYNDROME [None]
  - FEELING COLD [None]
  - HYPERHIDROSIS [None]
  - MEMORY IMPAIRMENT [None]
  - MYALGIA [None]
  - SPEECH DISORDER [None]
  - THINKING ABNORMAL [None]
  - VISUAL IMPAIRMENT [None]
  - WEIGHT INCREASED [None]
